FAERS Safety Report 8789135 (Version 1)
Quarter: 2012Q4

REPORT INFORMATION
  Report Type: Spontaneous
  Country: US (occurrence: None)
  Receive Date: 20120904
  Receipt Date: 20120904
  Transmission Date: 20130627
  Serious: Yes (Hospitalization)
  Sender: FDA-Public Use
  Company Number: 001010633A

PATIENT
  Sex: Female

DRUGS (4)
  1. NATURAL ADVANTAGE SPF 15 ALL DAY MOISTURE WITH AHAS [Suspect]
     Route: 061
     Dates: start: 20110903, end: 20110906
  2. SYNTHROID [Concomitant]
  3. BOWEL MEDICATIONS [Concomitant]
  4. CLARITIN [Concomitant]

REACTIONS (3)
  - Swelling face [None]
  - Eye swelling [None]
  - Rash macular [None]
